FAERS Safety Report 8392886-3 (Version None)
Quarter: 2012Q2

REPORT INFORMATION
  Report Type: 
  Country: None (occurrence: None)
  Receive Date: 20120529
  Receipt Date: 20120404
  Transmission Date: 20120825
  Serious: No
  Sender: FDA-Public Use
  Company Number: US-MYLANLABS-2012S1004655

PATIENT
  Age: 51 Year
  Sex: Female
  Weight: 90.72 kg

DRUGS (3)
  1. ZOLPIDEM TARTRATE [Suspect]
     Route: 048
  2. ZOLPIDEM TARTRATE [Suspect]
     Indication: INSOMNIA
     Dosage: 15MG TO 20MG HS
     Route: 048
     Dates: start: 20120110
  3. ZOLPIDEM TARTRATE [Suspect]
     Route: 048

REACTIONS (3)
  - INCORRECT DOSE ADMINISTERED [None]
  - DRUG INEFFECTIVE [None]
  - INSOMNIA [None]
